FAERS Safety Report 5828986-9 (Version None)
Quarter: 2008Q3

REPORT INFORMATION
  Report Type: 
  Country: None (occurrence: None)
  Receive Date: 20080731
  Receipt Date: 20080722
  Transmission Date: 20090109
  Serious: Yes (Disabling, Other)
  Sender: FDA-Public Use
  Company Number: PHHY2008IT15213

PATIENT
  Sex: Female

DRUGS (2)
  1. ZOMETA [Suspect]
     Indication: METASTASES TO BONE
     Dosage: 4 MG, QMO
     Route: 042
     Dates: start: 20030801, end: 20050901
  2. DELTACORTENE [Concomitant]
     Dosage: 25 MG, UNK
     Route: 048

REACTIONS (2)
  - OSTEOMYELITIS [None]
  - OSTEONECROSIS [None]
